FAERS Safety Report 11082424 (Version 1)
Quarter: 2015Q2

REPORT INFORMATION
  Report Type: Report from Study
  Country: ZA (occurrence: ZA)
  Receive Date: 20150501
  Receipt Date: 20150501
  Transmission Date: 20150821
  Serious: Yes (Other)
  Sender: FDA-Public Use
  Company Number: PHHY2015ZA047699

PATIENT
  Sex: Female

DRUGS (1)
  1. GLIVEC [Suspect]
     Active Substance: IMATINIB MESYLATE
     Indication: CHRONIC MYELOID LEUKAEMIA
     Dosage: 600 MG, QD
     Route: 065

REACTIONS (4)
  - Hyperviscosity syndrome [Unknown]
  - Chronic myeloid leukaemia transformation [Unknown]
  - Drug resistance [Unknown]
  - Chronic myeloid leukaemia [Unknown]
